FAERS Safety Report 5167471-7 (Version None)
Quarter: 2006Q4

REPORT INFORMATION
  Report Type: 
  Country: None (occurrence: None)
  Receive Date: 20061130
  Receipt Date: 20061117
  Transmission Date: 20070319
  Serious: Yes (Other)
  Sender: FDA-Public Use
  Company Number: 15189

PATIENT
  Age: 27 Week
  Sex: Female

DRUGS (1)
  1. DOPAMINE HCL [Suspect]
     Indication: HYPOTENSION
     Dosage: 6 MCG/KG PER MINUTE, UNK

REACTIONS (2)
  - CONGENITAL HYPOTHYROIDISM [None]
  - INTRAVENTRICULAR HAEMORRHAGE NEONATAL [None]
